FAERS Safety Report 10950223 (Version 2)
Quarter: 2015Q1

REPORT INFORMATION
  Report Type: Spontaneous
  Country: US (occurrence: None)
  Receive Date: 20150310
  Receipt Date: 20150318
  Transmission Date: 20150721
  Serious: Yes (Hospitalization, Other)
  Sender: FDA-Public Use
  Company Number: 003-258

PATIENT
  Age: 26 Year
  Sex: Male

DRUGS (2)
  1. CROFAB [Suspect]
     Active Substance: CROTALIDAE POLYVALENT IMMUNE FAB (OVINE)
     Indication: SNAKE BITE
     Dates: start: 20150225
  2. ANTIBIOTICS [Concomitant]
     Active Substance: UNSPECIFIED INGREDIENT

REACTIONS (7)
  - Peripheral swelling [None]
  - Neutrophil count decreased [None]
  - Skin necrosis [None]
  - Haemoglobin decreased [None]
  - Platelet count decreased [None]
  - Haematocrit decreased [None]
  - Blood fibrinogen decreased [None]

NARRATIVE: CASE EVENT DATE: 201502
